FAERS Safety Report 4507280-2 (Version None)
Quarter: 2004Q4

REPORT INFORMATION
  Report Type: 
  Country: None (occurrence: None)
  Receive Date: 20041118
  Receipt Date: 20041101
  Transmission Date: 20050328
  Serious: Yes (Death)
  Sender: FDA-Public Use
  Company Number: B0349817A

PATIENT
  Age: 32 Year
  Sex: 0

DRUGS (2)
  1. WELLBUTRIN [Suspect]
     Dosage: ORAL
     Route: 048
  2. TOPRAIMATE (FORMULATION UNKNOWN) (TOPIRAMATE) [Suspect]
     Dosage: ORAL
     Route: 048

REACTIONS (2)
  - CARDIO-RESPIRATORY ARREST [None]
  - COMPLETED SUICIDE [None]
